FAERS Safety Report 8934383 (Version 1)
Quarter: 2012Q4

REPORT INFORMATION
  Report Type: 
  Country: FR (occurrence: FR)
  Receive Date: 20121129
  Receipt Date: 20121129
  Transmission Date: 20130627
  Serious: Yes (Hospitalization)
  Sender: FDA-Public Use
  Company Number: FR-SANOFI-AVENTIS-2012SA085535

PATIENT
  Age: 56 Year
  Sex: Male

DRUGS (13)
  1. STILNOX [Suspect]
     Indication: DRUG USE FOR UNKNOWN INDICATION
     Dosage: Dose:0.5 unit(s)
     Route: 048
     Dates: start: 20120927, end: 20121024
  2. TAVANIC [Suspect]
     Indication: SEPSIS NOS
     Route: 048
     Dates: start: 20121003, end: 20121024
  3. LASILIX [Suspect]
     Indication: DRUG USE FOR UNKNOWN INDICATION
     Route: 048
     Dates: end: 20121024
  4. INEXIUM [Suspect]
     Indication: DRUG USE FOR UNKNOWN INDICATION
     Route: 048
     Dates: start: 20120926, end: 20121024
  5. TAHOR [Suspect]
     Indication: DRUG USE FOR UNKNOWN INDICATION
     Route: 048
     Dates: start: 2012, end: 20121024
  6. AERIUS [Suspect]
     Indication: PRURITIS
     Dosage: start date: Sep or Oct-12
     Route: 048
     Dates: start: 2012, end: 20121024
  7. TAZOCILLINE [Concomitant]
  8. PREVISCAN [Concomitant]
     Dates: end: 20121024
  9. CARDENSIEL [Concomitant]
  10. SMECTITE [Concomitant]
     Dates: end: 20121024
  11. TIORFAN [Concomitant]
     Dates: end: 20121024
  12. RENAGEL [Concomitant]
     Dates: end: 20121024
  13. FORLAX [Concomitant]
     Dates: end: 20121024

REACTIONS (1)
  - Agranulocytosis [Recovering/Resolving]
